FAERS Safety Report 8321237-5 (Version None)
Quarter: 2012Q2

REPORT INFORMATION
  Report Type: 
  Country: None (occurrence: None)
  Receive Date: 20120430
  Receipt Date: 20120416
  Transmission Date: 20120825
  Serious: Yes (Other)
  Sender: FDA-Public Use
  Company Number: GB-TEVA-333519ISR

PATIENT
  Age: 38 Year
  Sex: Female

DRUGS (2)
  1. MIRENA [Interacting]
     Dates: start: 20110701
  2. CABERGOLINE [Suspect]
     Indication: HYPERPROLACTINAEMIA
     Dates: start: 20080101

REACTIONS (2)
  - PREGNANCY WITH CONTRACEPTIVE DEVICE [None]
  - DRUG INTERACTION [None]
